FAERS Safety Report 8106884-8 (Version None)
Quarter: 2012Q1

REPORT INFORMATION
  Report Type: 
  Country: None (occurrence: None)
  Receive Date: 20120202
  Receipt Date: 20120120
  Transmission Date: 20120608
  Serious: Yes (Hospitalization)
  Sender: FDA-Public Use
  Company Number: JP-UCBSA-050331

PATIENT

DRUGS (1)
  1. XYZAL [Suspect]
     Route: 048

REACTIONS (1)
  - RENAL IMPAIRMENT [None]
